FAERS Safety Report 7329614-6 (Version None)
Quarter: 2011Q1

REPORT INFORMATION
  Report Type: 
  Country: None (occurrence: None)
  Receive Date: 20110303
  Receipt Date: 20110301
  Transmission Date: 20110831
  Serious: Yes (Hospitalization)
  Sender: FDA-Public Use
  Company Number: US-CEPHALON-2011000838

PATIENT
  Sex: Female
  Weight: 67 kg

DRUGS (19)
  1. ALLEGRA [Concomitant]
  2. NEULASTA [Concomitant]
     Dates: start: 20110106
  3. NEXIUM [Concomitant]
  4. DARVOCET [Concomitant]
  5. SIMVASTATIN [Concomitant]
  6. BENDAMUSTINE HCL [Suspect]
     Indication: MULTIPLE MYELOMA
     Route: 041
     Dates: start: 20101207
  7. ATIVAN [Concomitant]
     Dates: start: 20101207
  8. KLOR-CON [Concomitant]
     Dates: start: 20101221
  9. CLARINEX [Concomitant]
  10. REVLIMID [Suspect]
     Indication: MULTIPLE MYELOMA
     Route: 048
     Dates: start: 20101207
  11. OXYCODONE [Concomitant]
     Dates: start: 20101207
  12. AREDIA [Concomitant]
  13. DEXAMETHASONE [Suspect]
     Indication: MULTIPLE MYELOMA
     Route: 048
     Dates: start: 20101207
  14. METOPROLOL [Concomitant]
  15. ASPIRIN [Concomitant]
  16. GABAPENTIN [Concomitant]
  17. PRILOSEC [Concomitant]
  18. LOTREL [Concomitant]
  19. PENTAMIDINE ISETHIONATE [Concomitant]
     Dates: start: 20101208

REACTIONS (2)
  - DIARRHOEA HAEMORRHAGIC [None]
  - VIRAL INFECTION [None]
